FAERS Safety Report 24730652 (Version 1)
Quarter: 2024Q4

REPORT INFORMATION
  Report Type: Spontaneous
  Country: AU (occurrence: AU)
  Receive Date: 20241213
  Receipt Date: 20241213
  Transmission Date: 20250115
  Serious: Yes (Death, Hospitalization, Other)
  Sender: MARKSANS PHARMA LIMITED
  Company Number: AU-MARKSANS PHARMA LIMITED-MPL202400091

PATIENT

DRUGS (1)
  1. ACETAMINOPHEN [Suspect]
     Active Substance: ACETAMINOPHEN
     Indication: Product used for unknown indication
     Dosage: UNK
     Route: 065

REACTIONS (4)
  - Nervous system disorder [Fatal]
  - Overdose [Fatal]
  - Hyperammonaemia [Unknown]
  - Acute hepatic failure [Unknown]
